FAERS Safety Report 4769095-X (Version None)
Quarter: 2005Q3

REPORT INFORMATION
  Report Type: 
  Country: None (occurrence: None)
  Receive Date: 20050912
  Receipt Date: 20050516
  Transmission Date: 20060218
  Serious: Yes (Life-Threatening, Disabling)
  Sender: FDA-Public Use
  Company Number: 2000-BP-01800

PATIENT
  Age: 33 Year
  Sex: Female

DRUGS (2)
  1. VIRAMUNE [Suspect]
     Indication: PROPHYLAXIS
     Dosage: 200 MG (200 MG, 200 MG DAILY), PO
     Route: 048
     Dates: start: 20000718, end: 20000726
  2. COMBIVIR [Concomitant]

REACTIONS (2)
  - HEPATITIS [None]
  - RASH [None]
